FAERS Safety Report 10347221 (Version 2)
Quarter: 2014Q3

REPORT INFORMATION
  Report Type: Spontaneous
  Country: FI (occurrence: FI)
  Receive Date: 20140729
  Receipt Date: 20140930
  Transmission Date: 20150326
  Serious: Yes (Other)
  Sender: FDA-Public Use
  Company Number: FI-ASTELLAS-2014US008998

PATIENT
  Age: 58 Year
  Sex: Female

DRUGS (3)
  1. ERLOTINIB [Suspect]
     Active Substance: ERLOTINIB
     Indication: LUNG ADENOCARCINOMA
     Route: 065
     Dates: start: 20131203
  2. SYMBICORT [Concomitant]
     Active Substance: BUDESONIDE\FORMOTEROL FUMARATE DIHYDRATE
     Indication: ASTHMA
     Dosage: UNK UNK, UNKNOWN FREQ.
     Route: 065
  3. TETRALYSAL                         /00052901/ [Concomitant]
     Active Substance: LYMECYCLINE
     Indication: PRODUCT USED FOR UNKNOWN INDICATION
     Dosage: AT INTERVALS 2 WEEK PERIOD (300 MG, IN 2 DAYS)
     Route: 065

REACTIONS (5)
  - Hearing impaired [Unknown]
  - Balance disorder [Unknown]
  - Dizziness [Unknown]
  - Metastases to meninges [Unknown]
  - Ear disorder [Unknown]

NARRATIVE: CASE EVENT DATE: 20131223
